FAERS Safety Report 5807559-8 (Version None)
Quarter: 2008Q3

REPORT INFORMATION
  Report Type: 
  Country: None (occurrence: None)
  Receive Date: 20080711
  Receipt Date: 20080702
  Transmission Date: 20090109
  Serious: Yes (Congenital Anomaly, Other)
  Sender: FDA-Public Use
  Company Number: US-JNJFOC-20080701595

PATIENT
  Sex: Male

DRUGS (1)
  1. IBUPROFEN TABLETS [Suspect]
     Indication: DRUG EXPOSURE DURING PREGNANCY

REACTIONS (8)
  - BIPOLAR DISORDER [None]
  - NERVOUS SYSTEM DISORDER [None]
  - PANCREATIC CYST [None]
  - PANCREATITIS [None]
  - PERONEAL MUSCULAR ATROPHY [None]
  - SCHIZOPHRENIA [None]
  - SPINA BIFIDA [None]
  - TYPE 1 DIABETES MELLITUS [None]
